FAERS Safety Report 8680286 (Version 3)
Quarter: 2012Q4

REPORT INFORMATION
  Report Type: 
  Country: NL (occurrence: NL)
  Receive Date: 20120724
  Receipt Date: 20121102
  Transmission Date: 20130627
  Serious: Yes (Life-Threatening, Hospitalization)
  Sender: FDA-Public Use
  Company Number: NL-ALEXION PHARMACEUTICALS INC.-A201201351

PATIENT
  Age: 72 Year
  Sex: Female
  Weight: 73 kg

DRUGS (5)
  1. SOLIRIS 300MG [Suspect]
     Indication: PAROXYSMAL NOCTURNAL HAEMOGLOBINURIA
     Dosage: 600 mg, qw
     Route: 042
     Dates: start: 20111007, end: 20111027
  2. SOLIRIS 300MG [Suspect]
     Dosage: 900 mg, q2w
     Dates: start: 20111103
  3. VITAMIN B12 [Concomitant]
     Dosage: 1 time, every 2 months
     Route: 030
     Dates: start: 201010
  4. FOLIC ACID [Concomitant]
     Dosage: 5 mg, qd
     Route: 048
     Dates: start: 20101025
  5. ACENOCOUMAROL [Concomitant]
     Indication: THROMBOSIS PROPHYLAXIS
     Dosage: ^according to INR^
     Route: 048
     Dates: start: 20110113, end: 20120622

REACTIONS (2)
  - Meningococcal sepsis [Recovered/Resolved]
  - Herpes simplex [Recovered/Resolved]
